FAERS Safety Report 14076161 (Version 1)
Quarter: 2017Q4

REPORT INFORMATION
  Report Type: Spontaneous
  Country: AR (occurrence: AR)
  Receive Date: 20171011
  Receipt Date: 20171011
  Transmission Date: 20180321
  Serious: Yes (Other)
  Sender: FDA-Public Use
  Company Number: AR-ASTRAZENECA-2017SF02950

PATIENT
  Sex: Female

DRUGS (3)
  1. FREVIA [Suspect]
     Active Substance: BUDESONIDE\FORMOTEROL
     Indication: ASTHMA
     Route: 055
     Dates: start: 20170912, end: 20171002
  2. SERETIDE [Concomitant]
     Active Substance: FLUTICASONE PROPIONATE\SALMETEROL XINAFOATE
     Dosage: 250.0UG UNKNOWN
  3. SALMETEROL [Concomitant]
     Active Substance: SALMETEROL
     Dosage: 25.0UG UNKNOWN

REACTIONS (2)
  - Asthmatic crisis [Recovered/Resolved]
  - Drug ineffective [Recovered/Resolved]

NARRATIVE: CASE EVENT DATE: 20170912
